FAERS Safety Report 5448113-X (Version None)
Quarter: 2007Q3

REPORT INFORMATION
  Report Type: 
  Country: None (occurrence: None)
  Receive Date: 20070803
  Receipt Date: 20060117
  Transmission Date: 20080115
  Serious: No
  Sender: FDA-Public Use
  Company Number: 200610336BWH

PATIENT
  Age: 55 Year
  Sex: Male

DRUGS (4)
  1. SORAFENIB [Suspect]
     Indication: RENAL CELL CARCINOMA STAGE UNSPECIFIED
     Dosage: 400 MG,BID,ORAL
     Route: 048
     Dates: start: 20051201
  2. ENALAPRIL MALEATE [Concomitant]
  3. GUAIFENESIN [Concomitant]
  4. ZITHROMAX [Concomitant]

REACTIONS (6)
  - ALOPECIA [None]
  - DIARRHOEA [None]
  - ORAL PAIN [None]
  - PAIN IN EXTREMITY [None]
  - PHARYNGOLARYNGEAL PAIN [None]
  - RASH [None]
